FAERS Safety Report 5131945-5 (Version None)
Quarter: 2006Q4

REPORT INFORMATION
  Report Type: 
  Country: None (occurrence: None)
  Receive Date: 20061017
  Receipt Date: 20061004
  Transmission Date: 20070319
  Serious: Yes (Death, Hospitalization, Other)
  Sender: FDA-Public Use
  Company Number: 2005167350

PATIENT
  Age: 82 Year
  Sex: Female
  Weight: 76.2043 kg

DRUGS (1)
  1. CELEBREX [Suspect]
     Indication: ARTHRITIS
     Dosage: ORAL
     Route: 048
     Dates: end: 20060907

REACTIONS (7)
  - CARDIAC FAILURE [None]
  - COMA [None]
  - MULTI-ORGAN FAILURE [None]
  - PAIN [None]
  - RENAL FAILURE [None]
  - STEVENS-JOHNSON SYNDROME [None]
  - TOXIC EPIDERMAL NECROLYSIS [None]
